FAERS Safety Report 23637132 (Version 2)
Quarter: 2024Q1

REPORT INFORMATION
  Report Type: Spontaneous
  Country: GB (occurrence: GB)
  Receive Date: 20240315
  Receipt Date: 20240322
  Transmission Date: 20240409
  Serious: Yes (Death)
  Sender: FDA-Public Use
  Company Number: GB-MYLANLABS-2024M1024153

PATIENT
  Age: 83 Year
  Sex: Male

DRUGS (3)
  1. CLOZARIL [Suspect]
     Active Substance: CLOZAPINE
     Indication: Schizophrenia
     Dosage: 50 MILLIGRAM, QD (ONCE AT NIGHT)
     Route: 048
     Dates: start: 20201207
  2. CLOZARIL [Suspect]
     Active Substance: CLOZAPINE
     Indication: Dementia
  3. CLOZARIL [Suspect]
     Active Substance: CLOZAPINE
     Indication: Parkinson^s disease psychosis

REACTIONS (2)
  - Asthenia [Fatal]
  - Salivary hypersecretion [Unknown]

NARRATIVE: CASE EVENT DATE: 20240311
